FAERS Safety Report 9709668 (Version 2)
Quarter: 2013Q4

REPORT INFORMATION
  Report Type: Report from Study
  Country: VE (occurrence: VE)
  Receive Date: 20131126
  Receipt Date: 20131204
  Transmission Date: 20140711
  Serious: Yes (Hospitalization, Other)
  Sender: FDA-Public Use
  Company Number: PHHY2013VE135644

PATIENT
  Age: 69 Year
  Sex: Female

DRUGS (4)
  1. ACLASTA [Suspect]
     Indication: OSTEOPOROSIS
     Dosage: 5 MG ANNUALLY
     Route: 042
     Dates: start: 20120315
  2. PROTELOS [Concomitant]
     Indication: OSTEOPOROSIS
     Dosage: 1 DF, DAILY
  3. CALCIO [Concomitant]
     Indication: OSTEOPOROSIS
     Dosage: 1 DF, DAILY
  4. LYRICA [Concomitant]
     Indication: PAIN
     Dosage: 1 DF, DAILY

REACTIONS (3)
  - Wrist fracture [Recovered/Resolved]
  - Bone pain [Not Recovered/Not Resolved]
  - Fall [Unknown]
